FAERS Safety Report 12253379 (Version 1)
Quarter: 2016Q2

REPORT INFORMATION
  Report Type: Spontaneous
  Country: AU (occurrence: AU)
  Receive Date: 20160411
  Receipt Date: 20160411
  Transmission Date: 20160815
  Serious: Yes (Hospitalization)
  Sender: FDA-Public Use
  Company Number: AU-IPSEN BIOPHARMACEUTICALS, INC.-2016-03028

PATIENT
  Sex: Female

DRUGS (3)
  1. DYSPORT [Suspect]
     Active Substance: ABOBOTULINUMTOXINA
     Indication: SKIN WRINKLING
     Dosage: NOT REPORTED
     Route: 030
  2. DYSPORT [Suspect]
     Active Substance: ABOBOTULINUMTOXINA
     Indication: PRODUCT USE ISSUE
  3. BOTOX [Suspect]
     Active Substance: ONABOTULINUMTOXINA
     Indication: SKIN COSMETIC PROCEDURE

REACTIONS (17)
  - Pyrexia [Unknown]
  - Diarrhoea [Unknown]
  - Asthenia [Unknown]
  - Hyperacusis [Unknown]
  - Speech disorder [Unknown]
  - Vision blurred [Unknown]
  - Feeling of body temperature change [Unknown]
  - Pain [Unknown]
  - Facial pain [Unknown]
  - Vomiting [Unknown]
  - Neck pain [Unknown]
  - Influenza like illness [Unknown]
  - Rash [Unknown]
  - Parosmia [Unknown]
  - Feeling abnormal [Unknown]
  - Fatigue [Unknown]
  - Photophobia [Unknown]

NARRATIVE: CASE EVENT DATE: 2009
